FAERS Safety Report 5661406-6 (Version None)
Quarter: 2008Q1

REPORT INFORMATION
  Report Type: 
  Country: None (occurrence: None)
  Receive Date: 20080311
  Receipt Date: 20080228
  Transmission Date: 20080703
  Serious: No
  Sender: FDA-Public Use
  Company Number: US-ELI_LILLY_AND_COMPANY-US200711002153

PATIENT
  Age: 27 Year
  Sex: Female
  Weight: 107.94 kg

DRUGS (4)
  1. CYMBALTA [Suspect]
     Dosage: 60 MG, UNK
     Dates: start: 20070925
  2. CYMBALTA [Suspect]
     Dosage: 30 MG, UNK
     Dates: end: 20071029
  3. CYMBALTA [Suspect]
     Dosage: 1 D/F, UNK
  4. EFFEXOR [Concomitant]
     Dosage: 1 D/F, UNK

REACTIONS (6)
  - FATIGUE [None]
  - HYPERHIDROSIS [None]
  - KIDNEY INFECTION [None]
  - URINARY HESITATION [None]
  - URINE BILIRUBIN INCREASED [None]
  - URINE COLOUR ABNORMAL [None]
